FAERS Safety Report 25818215 (Version 1)
Quarter: 2025Q3

REPORT INFORMATION
  Report Type: Spontaneous
  Country: TR (occurrence: TR)
  Receive Date: 20250918
  Receipt Date: 20250918
  Transmission Date: 20251021
  Serious: Yes (Other)
  Sender: GILEAD
  Company Number: TR-GILEAD-2025-0727804

PATIENT
  Age: 33 Year
  Sex: Female

DRUGS (2)
  1. TRODELVY [Suspect]
     Active Substance: SACITUZUMAB GOVITECAN-HZIY
     Indication: Triple negative breast cancer
     Route: 065
     Dates: start: 20250619, end: 20250801
  2. TRODELVY [Suspect]
     Active Substance: SACITUZUMAB GOVITECAN-HZIY
     Route: 065

REACTIONS (4)
  - Neutropenia [Unknown]
  - Disease progression [Unknown]
  - Anaemia [Unknown]
  - Product use in unapproved indication [Unknown]
